FAERS Safety Report 13584045 (Version 2)
Quarter: 2017Q2

REPORT INFORMATION
  Report Type: Spontaneous
  Country: IT (occurrence: IT)
  Receive Date: 20170526
  Receipt Date: 20170601
  Transmission Date: 20170830
  Serious: Yes (Other)
  Sender: FDA-Public Use
  Company Number: IT-ROCHE-1940344

PATIENT
  Age: 71 Year
  Sex: Male
  Weight: 100 kg

DRUGS (9)
  1. PARACETAMOL [Concomitant]
     Active Substance: ACETAMINOPHEN
  2. ZOFRAN [Concomitant]
     Active Substance: ONDANSETRON HYDROCHLORIDE
  3. MABTHERA [Suspect]
     Active Substance: RITUXIMAB
     Indication: NON-HODGKIN^S LYMPHOMA
     Dosage: 1 VIAL 500 MG 50 ML
     Route: 042
     Dates: start: 20170320
  4. LUCEN [Concomitant]
     Active Substance: ESOMEPRAZOLE
     Indication: CHRONIC GASTRITIS
     Dosage: ^20 MG GASTRO-RESISTANT TABLETS^ 25X1, PERIOD: 5 YEAR
     Route: 048
  5. ISOPTIN [Concomitant]
     Active Substance: VERAPAMIL HYDROCHLORIDE
     Indication: HYPERTENSIVE HEART DISEASE
     Dosage: PERIOD: 5 YEARS
     Route: 065
  6. LISINOPRIL. [Concomitant]
     Active Substance: LISINOPRIL
     Indication: HYPERTENSIVE HEART DISEASE
     Dosage: PERIOD: 5 YEARS, FOR CHRONIC USE
     Route: 065
  7. LASIX [Concomitant]
     Active Substance: FUROSEMIDE
     Indication: HYPERTENSIVE HEART DISEASE
     Dosage: ^25 MG TABLETS^ 30 TABLETS, PERIOD: 5 YEARS
     Route: 065
  8. AMARYL [Concomitant]
     Active Substance: GLIMEPIRIDE
     Indication: DIABETES MELLITUS
     Dosage: PERIOD: 5 YEARS
     Route: 048
  9. BENDAMUSTINE [Concomitant]
     Active Substance: BENDAMUSTINE
     Dosage: 1 ST ADMINISTRATION ON 20/MAR/2017 AND 2ND ADMINISTRATION ON 18/APR/2017?3 RD ADMINISTRATION ON 16/M
     Route: 065

REACTIONS (3)
  - Nausea [Recovered/Resolved]
  - Syncope [Recovered/Resolved]
  - Hyperhidrosis [Recovered/Resolved]

NARRATIVE: CASE EVENT DATE: 20170516
